FAERS Safety Report 5039607-X (Version None)
Quarter: 2006Q2

REPORT INFORMATION
  Report Type: 
  Country: None (occurrence: None)
  Receive Date: 20060601
  Receipt Date: 20060120
  Transmission Date: 20061013
  Serious: No
  Sender: FDA-Public Use
  Company Number: 2006PV007405

PATIENT
  Age: 68 Year
  Sex: Female
  Weight: 127.0072 kg

DRUGS (15)
  1. BYETTA [Suspect]
     Indication: DIABETES MELLITUS NON-INSULIN-DEPENDENT
     Dosage: 5 MCG; BID; SC; SEE IMAGE
     Route: 058
     Dates: start: 20051130, end: 20051201
  2. BYETTA [Suspect]
     Indication: DIABETES MELLITUS NON-INSULIN-DEPENDENT
     Dosage: 5 MCG; BID; SC; SEE IMAGE
     Route: 058
     Dates: start: 20051201, end: 20060101
  3. BYETTA [Suspect]
     Indication: DIABETES MELLITUS NON-INSULIN-DEPENDENT
     Dosage: 5 MCG; BID; SC; SEE IMAGE
     Route: 058
     Dates: start: 20060202
  4. GLUCOPHAGE [Concomitant]
  5. AVANDIA [Concomitant]
  6. ASPIRIN [Concomitant]
  7. AMIODARONE HCL [Concomitant]
  8. FOLIC ACID [Concomitant]
  9. GLUCOSAMINE W/CHONDROITIN SULFATES [Concomitant]
  10. METAMUCIL-2 [Concomitant]
  11. PREMARIN [Concomitant]
  12. ZOCOR [Concomitant]
  13. DITROPAN [Concomitant]
  14. NEURONTIN [Concomitant]
  15. CENTRUM SILVER [Concomitant]

REACTIONS (5)
  - BLISTER [None]
  - DIARRHOEA [None]
  - RASH GENERALISED [None]
  - SKIN ULCER [None]
  - WEIGHT DECREASED [None]
